FAERS Safety Report 15043904 (Version 1)
Quarter: 2018Q2

REPORT INFORMATION
  Report Type: Spontaneous
  Country: US (occurrence: US)
  Receive Date: 20180621
  Receipt Date: 20180621
  Transmission Date: 20180711
  Serious: Yes (Other)
  Sender: FDA-Public Use
  Company Number: US-ALLERGAN-1831366US

PATIENT
  Age: 65 Year
  Sex: Male

DRUGS (1)
  1. MORPHINE SULFATE UNK [Suspect]
     Active Substance: MORPHINE SULFATE
     Indication: EAR DISORDER
     Dosage: UNK
     Route: 065

REACTIONS (11)
  - Encephalitis [Recovering/Resolving]
  - Mastoiditis [Recovering/Resolving]
  - Diplopia [Recovering/Resolving]
  - CNS ventriculitis [Recovering/Resolving]
  - Pyelonephritis [Recovering/Resolving]
  - Disorientation [Recovering/Resolving]
  - Off label use [Unknown]
  - Urinary retention [Recovering/Resolving]
  - Ear disorder [Recovering/Resolving]
  - Superior semicircular canal dehiscence [Recovering/Resolving]
  - Somnolence [Recovering/Resolving]
